FAERS Safety Report 24720753 (Version 2)
Quarter: 2025Q3

REPORT INFORMATION
  Report Type: Report from Study
  Country: RU (occurrence: RU)
  Receive Date: 20241211
  Receipt Date: 20250809
  Transmission Date: 20251021
  Serious: Yes (Hospitalization)
  Sender: ALEXION PHARMACEUTICALS
  Company Number: RU-AstraZeneca-CH-00760944A

PATIENT
  Sex: Female
  Weight: 29 kg

DRUGS (1)
  1. SELUMETINIB [Suspect]
     Active Substance: SELUMETINIB
     Indication: Neurofibroma
     Dosage: 20 MILLIGRAM, Q12H
     Dates: start: 20211022, end: 20241110

REACTIONS (3)
  - Anal fissure haemorrhage [Recovered/Resolved]
  - Proctitis [Recovered/Resolved]
  - Mesenteric lymphadenitis [Recovered/Resolved]
